FAERS Safety Report 22215284 (Version 1)
Quarter: 2023Q2

REPORT INFORMATION
  Report Type: Spontaneous
  Country: US (occurrence: US)
  Receive Date: 20230415
  Receipt Date: 20230415
  Transmission Date: 20230721
  Serious: No
  Sender: FDA-Public Use
  Company Number: US-JNJFOC-20230408961

PATIENT
  Age: 40 Year
  Sex: Female

DRUGS (1)
  1. CHILDRENS ZYRTEC [Suspect]
     Active Substance: CETIRIZINE HYDROCHLORIDE
     Indication: Pruritus
     Dosage: 10 ML ONCE A DAY
     Route: 048
     Dates: start: 20230402

REACTIONS (2)
  - Hypoaesthesia oral [Recovered/Resolved]
  - Product administered to patient of inappropriate age [Recovered/Resolved]

NARRATIVE: CASE EVENT DATE: 20230402
